FAERS Safety Report 5079124-4 (Version None)
Quarter: 2006Q3

REPORT INFORMATION
  Report Type: 
  Country: None (occurrence: None)
  Receive Date: 20060720
  Receipt Date: 20050812
  Transmission Date: 20061208
  Serious: Yes (Hospitalization, Other)
  Sender: FDA-Public Use
  Company Number: 2005114860

PATIENT
  Age: 80 Year
  Sex: Male
  Weight: 71.2147 kg

DRUGS (3)
  1. CELEBREX [Suspect]
     Indication: RHEUMATOID ARTHRITIS
     Dosage: 200 MG (200 MG, 1 IN 1 D), UNKNOWN
  2. METHOTREXATE [Concomitant]
  3. ASPIRIN [Concomitant]

REACTIONS (1)
  - MYOCARDIAL INFARCTION [None]
